FAERS Safety Report 10347521 (Version 1)
Quarter: 2014Q3

REPORT INFORMATION
  Report Type: Spontaneous
  Country: US (occurrence: None)
  Receive Date: 20140728
  Receipt Date: 20140728
  Transmission Date: 20150326
  Serious: No
  Sender: FDA-Public Use
  Company Number: None

PATIENT
  Age: 49 Year
  Sex: Male

DRUGS (4)
  1. NORMAL SALINE [Concomitant]
     Active Substance: SODIUM CHLORIDE
  2. ISOVUE [Suspect]
     Active Substance: IOPAMIDOL
     Indication: IMAGING PROCEDURE
     Dates: start: 20140707, end: 20140707
  3. IBUPROFEN. [Concomitant]
     Active Substance: IBUPROFEN
  4. ATENOLOL. [Concomitant]
     Active Substance: ATENOLOL

REACTIONS (2)
  - Sneezing [None]
  - Lacrimation increased [None]

NARRATIVE: CASE EVENT DATE: 20140707
